FAERS Safety Report 7329003-4 (Version None)
Quarter: 2011Q1

REPORT INFORMATION
  Report Type: 
  Country: None (occurrence: None)
  Receive Date: 20110303
  Receipt Date: 20110218
  Transmission Date: 20110831
  Serious: Yes (Hospitalization, Other)
  Sender: FDA-Public Use
  Company Number: PHHY2011GB13389

PATIENT
  Sex: Male
  Weight: 2.4 kg

DRUGS (3)
  1. MIRTAZAPINE [Suspect]
     Dosage: UNK
     Route: 064
  2. VENLAFAXINE [Suspect]
     Dosage: UNK
     Route: 064
  3. OLANZAPINE [Suspect]
     Dosage: UNK
     Route: 064

REACTIONS (6)
  - DRUG EXPOSURE DURING PREGNANCY [None]
  - DRUG WITHDRAWAL SYNDROME NEONATAL [None]
  - DRUG EXPOSURE VIA BREAST MILK [None]
  - RESTLESSNESS [None]
  - FEEDING DISORDER NEONATAL [None]
  - SEPSIS [None]
